FAERS Safety Report 9783328 (Version 1)
Quarter: 2013Q4

REPORT INFORMATION
  Report Type: Spontaneous
  Country: US (occurrence: US)
  Receive Date: 20131226
  Receipt Date: 20131226
  Transmission Date: 20140711
  Serious: Yes (Hospitalization)
  Sender: FDA-Public Use
  Company Number: US-BAYER-2013-156671

PATIENT
  Age: 19 Year
  Sex: Female
  Weight: 73.47 kg

DRUGS (18)
  1. YASMIN [Suspect]
  2. Z-PAK [Concomitant]
     Indication: PHARYNGITIS
  3. Z-PAK [Concomitant]
     Indication: EAR INFECTION
  4. TYLENOL #3 [Concomitant]
  5. MOTRIN [Concomitant]
     Indication: PHARYNGITIS
  6. MOTRIN [Concomitant]
     Indication: UPPER RESPIRATORY TRACT INFECTION
  7. AUGMENTIN XR [Concomitant]
     Indication: SINUSITIS
  8. DEXAMETHASONE [Concomitant]
     Indication: ANAESTHESIA
     Dosage: 4 MG, UNK
     Route: 042
     Dates: start: 20061204
  9. CHLORASEPTIC [Concomitant]
     Indication: UPPER RESPIRATORY TRACT INFECTION
     Dosage: PRN
  10. CHLORASEPTIC [Concomitant]
     Indication: PHARYNGITIS
  11. PROPOFOL [Concomitant]
     Indication: ANAESTHESIA
     Dosage: 200 MG, UNK
     Dates: start: 20061204
  12. LIDOCAINE [Concomitant]
     Indication: ANAESTHESIA
     Dosage: 2% 50 MG, UNK
  13. FENTANYL [Concomitant]
     Indication: ANAESTHESIA
     Dosage: 100 ?G, UNK
     Dates: start: 20061204
  14. TORADOL [Concomitant]
     Indication: ANAESTHESIA
     Dosage: 30 MG, UNK
     Dates: start: 20061204
  15. MARCAINE [Concomitant]
     Indication: ANAESTHESIA
     Dosage: 0.25% 10 CC
     Dates: start: 20061204
  16. ZOFRAN [Concomitant]
     Indication: ANAESTHESIA
     Dosage: 4 MG, UNK
     Dates: start: 20061204
  17. OXYGEN [Concomitant]
     Indication: ANAESTHESIA
     Dosage: 6 LITER PER MINUTE
     Dates: start: 20061204
  18. ALBUTEROL INHALER [Concomitant]
     Indication: ASTHMA

REACTIONS (1)
  - Deep vein thrombosis [None]
